FAERS Safety Report 6577041-1 (Version None)
Quarter: 2010Q1

REPORT INFORMATION
  Report Type: 
  Country: None (occurrence: None)
  Receive Date: 20100210
  Receipt Date: 20100204
  Transmission Date: 20100710
  Serious: Yes (Death)
  Sender: FDA-Public Use
  Company Number: JP-BRISTOL-MYERS SQUIBB COMPANY-14915706

PATIENT
  Age: 60 Year
  Sex: Female
  Weight: 55 kg

DRUGS (6)
  1. ERBITUX [Suspect]
     Indication: RECTAL CANCER
     Dosage: 580MG/M2 FROM 30SEP-30SEP09; 360MG/M2 FROM 06OCT-04NOV09;
     Route: 042
     Dates: start: 20090930, end: 20091104
  2. IRINOTECAN HCL [Concomitant]
     Indication: RECTAL CANCER
     Route: 042
     Dates: start: 20090930, end: 20091020
  3. FLUOROURACIL [Concomitant]
     Indication: RECTAL CANCER
     Route: 041
     Dates: start: 20090930, end: 20091020
  4. ISOVORIN [Concomitant]
     Indication: RECTAL CANCER
     Route: 041
     Dates: start: 20090930, end: 20091020
  5. POLARAMINE [Concomitant]
     Indication: PREMEDICATION
     Route: 042
     Dates: start: 20090930, end: 20091104
  6. DECADRON [Concomitant]
     Indication: PREMEDICATION
     Dosage: 1.1429 MG
     Route: 042
     Dates: start: 20090930, end: 20091104

REACTIONS (1)
  - MYOCARDIAL INFARCTION [None]
